FAERS Safety Report 16954444 (Version 2)
Quarter: 2020Q1

REPORT INFORMATION
  Report Type: Report from Study
  Country: GB (occurrence: GB)
  Receive Date: 20191023
  Receipt Date: 20200206
  Transmission Date: 20200409
  Serious: Yes (Hospitalization, Other)
  Sender: FDA-Public Use
  Company Number: PHHY2014GB071482

PATIENT
  Age: 31 Year
  Sex: Female

DRUGS (2)
  1. GILENYA [Suspect]
     Active Substance: FINGOLIMOD HYDROCHLORIDE
     Indication: MULTIPLE SCLEROSIS
     Dosage: 500 UG, QD
     Route: 048
     Dates: start: 20131016, end: 201412
  2. TECFIDERA [Suspect]
     Active Substance: DIMETHYL FUMARATE
     Indication: PRODUCT USED FOR UNKNOWN INDICATION
     Dosage: UNK
     Route: 065

REACTIONS (26)
  - Fatigue [Recovering/Resolving]
  - Herpes zoster [Unknown]
  - Urinary tract infection [Recovered/Resolved]
  - Lower respiratory tract infection [Recovered/Resolved]
  - Pruritus [Unknown]
  - Gamma-glutamyltransferase increased [Recovered/Resolved]
  - Herpes simplex [Unknown]
  - Pyrexia [Recovering/Resolving]
  - Malaise [Recovering/Resolving]
  - Alanine aminotransferase increased [Recovered/Resolved]
  - Flushing [Recovered/Resolved]
  - Vitamin B complex deficiency [Recovered/Resolved]
  - Urinary incontinence [Not Recovered/Not Resolved]
  - Urinary tract infection [Recovered/Resolved]
  - Rash [Unknown]
  - Dry mouth [Unknown]
  - Skin ulcer [Unknown]
  - Lymphocyte count decreased [Recovering/Resolving]
  - Depression [Unknown]
  - Blood bilirubin increased [Recovered/Resolved]
  - Urinary tract infection [Unknown]
  - Erythema [Recovered/Resolved]
  - Skin fissures [Unknown]
  - Thermal burn [Recovering/Resolving]
  - Constipation [Unknown]
  - Joint swelling [Not Recovered/Not Resolved]

NARRATIVE: CASE EVENT DATE: 20140109
